FAERS Safety Report 8402180-X (Version None)
Quarter: 2012Q2

REPORT INFORMATION
  Report Type: 
  Country: None (occurrence: None)
  Receive Date: 20120601
  Receipt Date: 20120529
  Transmission Date: 20120825
  Serious: Yes (Hospitalization, Other)
  Sender: FDA-Public Use
  Company Number: US-AMGEN-USASP2012027950

PATIENT
  Age: 77 Year
  Sex: Male

DRUGS (15)
  1. LASIX [Concomitant]
  2. PROCRIT [Suspect]
     Indication: NEPHROGENIC ANAEMIA
     Dosage: 40000 IU, Q2WK
     Route: 058
     Dates: start: 20120125, end: 20120426
  3. FISH OIL [Concomitant]
  4. ACETAMINOPHEN [Concomitant]
  5. METOPROLOL TARTRATE [Concomitant]
  6. LEVOTHYROXINE SODIUM [Concomitant]
  7. LOSARTAN POTASSIUM [Concomitant]
  8. ASPIRIN [Concomitant]
  9. OMEPRAZOLE [Concomitant]
  10. FLOMAX [Concomitant]
  11. TENEX [Concomitant]
  12. PROCRIT [Suspect]
     Dosage: 20000 IU, Q2WK
     Route: 058
  13. IRON SULFATETHIAMIN COMPOUND TAB [Concomitant]
  14. PREDNISONE TAB [Concomitant]
  15. NIACIN [Concomitant]

REACTIONS (6)
  - DRUG INEFFECTIVE [None]
  - REFRACTORY ANAEMIA [None]
  - APLASIA PURE RED CELL [None]
  - BONE MARROW RETICULIN FIBROSIS [None]
  - HOSPITALISATION [None]
  - SYSTEMIC LUPUS ERYTHEMATOSUS [None]
